FAERS Safety Report 25157420 (Version 1)
Quarter: 2025Q2

REPORT INFORMATION
  Report Type: Spontaneous
  Country: NL (occurrence: NL)
  Receive Date: 20250403
  Receipt Date: 20250403
  Transmission Date: 20250716
  Serious: Yes (Other)
  Sender: MYLAN
  Company Number: None

PATIENT
  Age: 44 Year
  Sex: Male
  Weight: 85 kg

DRUGS (4)
  1. VENLAFAXINE [Suspect]
     Active Substance: VENLAFAXINE HYDROCHLORIDE
     Indication: Anxiety disorder
     Dosage: 1 DOSAGE FORM, QD,(1X PER DAY 1 PIECE,WITH CONTROLLED RELEASE)
     Dates: start: 20250314
  2. VENLAFAXINE [Suspect]
     Active Substance: VENLAFAXINE HYDROCHLORIDE
     Dosage: 1 DOSAGE FORM, QD,(1X PER DAY 1 PIECE,WITH CONTROLLED RELEASE)
     Route: 048
     Dates: start: 20250314
  3. VENLAFAXINE [Suspect]
     Active Substance: VENLAFAXINE HYDROCHLORIDE
     Dosage: 1 DOSAGE FORM, QD,(1X PER DAY 1 PIECE,WITH CONTROLLED RELEASE)
     Route: 048
     Dates: start: 20250314
  4. VENLAFAXINE [Suspect]
     Active Substance: VENLAFAXINE HYDROCHLORIDE
     Dosage: 1 DOSAGE FORM, QD,(1X PER DAY 1 PIECE,WITH CONTROLLED RELEASE)
     Dates: start: 20250314

REACTIONS (2)
  - Psychotic symptom [Recovering/Resolving]
  - Confusional state [Recovering/Resolving]
